FAERS Safety Report 14407680 (Version 2)
Quarter: 2018Q1

REPORT INFORMATION
  Report Type: Report from Study
  Country: US (occurrence: US)
  Receive Date: 20180118
  Receipt Date: 20180202
  Transmission Date: 20180509
  Serious: No
  Sender: FDA-Public Use
  Company Number: US-ACTELION-A-US2017-156963

PATIENT
  Age: 42 Year
  Sex: Female
  Weight: 117.91 kg

DRUGS (3)
  1. OPSUMIT [Suspect]
     Active Substance: MACITENTAN
     Indication: PULMONARY HYPERTENSION
     Dosage: 10 MG, QD
     Route: 048
  2. ORENITRAM [Suspect]
     Active Substance: TREPROSTINIL
     Indication: PRODUCT USED FOR UNKNOWN INDICATION
     Dosage: 2.125 MG, UNK
     Route: 065
  3. ADCIRCA [Concomitant]
     Active Substance: TADALAFIL

REACTIONS (16)
  - Headache [Unknown]
  - Heart rate increased [Unknown]
  - Diarrhoea [Not Recovered/Not Resolved]
  - Dyspnoea [Unknown]
  - Blood pressure systolic decreased [Unknown]
  - Fatigue [Unknown]
  - Pain in extremity [Unknown]
  - Abdominal pain upper [Not Recovered/Not Resolved]
  - Menstruation irregular [Unknown]
  - Nausea [Unknown]
  - Dizziness [Unknown]
  - Chest pain [Unknown]
  - Asthenia [Unknown]
  - Fall [Unknown]
  - Pain [Unknown]
  - Vomiting [Unknown]

NARRATIVE: CASE EVENT DATE: 201712
